FAERS Safety Report 15905411 (Version 2)
Quarter: 2019Q1

REPORT INFORMATION
  Report Type: Report from Study
  Country: CO (occurrence: CO)
  Receive Date: 20190204
  Receipt Date: 20190305
  Transmission Date: 20190417
  Serious: Yes (Hospitalization)
  Sender: FDA-Public Use
  Company Number: CO-MYLANLABS-2018M1096974

PATIENT
  Age: 11 Year
  Sex: Female
  Weight: 27 kg

DRUGS (6)
  1. TOBRAMYCIN MYLAN [Suspect]
     Active Substance: TOBRAMYCIN
     Indication: CYSTIC FIBROSIS
     Dosage: 1 DF, Q12H
     Route: 055
     Dates: start: 2011, end: 20180813
  2. SALMETEROL                         /00954702/ [Concomitant]
     Active Substance: SALMETEROL XINAFOATE
     Indication: PRODUCT USED FOR UNKNOWN INDICATION
     Dosage: UNK
     Route: 065
  3. TOBRAMYCIN MYLAN [Suspect]
     Active Substance: TOBRAMYCIN
     Indication: PSEUDOMONAS INFECTION
     Dosage: 300 MG, 12 HR
     Route: 055
     Dates: start: 2011
  4. SALBUTAMOL                         /00139502/ [Concomitant]
     Active Substance: ALBUTEROL SULFATE
     Indication: PRODUCT USED FOR UNKNOWN INDICATION
     Dosage: UNK
     Route: 065
  5. TOBRAMYCIN MYLAN [Suspect]
     Active Substance: TOBRAMYCIN
     Dosage: UNK
     Route: 055
  6. HYPERSAL [Concomitant]
     Indication: PRODUCT USED FOR UNKNOWN INDICATION
     Dosage: UNK
     Route: 065

REACTIONS (5)
  - Dyspnoea [Recovered/Resolved]
  - Pyrexia [Recovering/Resolving]
  - Inappropriate schedule of product administration [Recovered/Resolved]
  - Influenza [Recovering/Resolving]
  - Fatigue [Unknown]

NARRATIVE: CASE EVENT DATE: 20180813
